FAERS Safety Report 23284909 (Version 1)
Quarter: 2023Q4

REPORT INFORMATION
  Report Type: Spontaneous
  Country: ID (occurrence: ID)
  Receive Date: 20231211
  Receipt Date: 20231211
  Transmission Date: 20240109
  Serious: Yes (Other)
  Sender: FDA-Public Use
  Company Number: ID-ELI_LILLY_AND_COMPANY-ID202311017538

PATIENT
  Age: 32 Year
  Sex: Male

DRUGS (2)
  1. BARICITINIB [Suspect]
     Active Substance: BARICITINIB
     Indication: Alopecia areata
     Dosage: UNK UNK, UNKNOWN
     Route: 065
  2. BARICITINIB [Suspect]
     Active Substance: BARICITINIB
     Indication: Vitiligo

REACTIONS (3)
  - Autoimmune hepatitis [Unknown]
  - Aspartate aminotransferase increased [Unknown]
  - Alanine aminotransferase increased [Unknown]
